FAERS Safety Report 16107832 (Version 4)
Quarter: 2022Q2

REPORT INFORMATION
  Report Type: Report from Study
  Country: JP (occurrence: JP)
  Receive Date: 20190322
  Receipt Date: 20220519
  Transmission Date: 20220720
  Serious: Yes (Death, Hospitalization, Disabling, Other)
  Sender: FDA-Public Use
  Company Number: JP-PFIZER INC-2019125712

PATIENT
  Age: 55 Year
  Sex: Female
  Weight: 33 kg

DRUGS (15)
  1. SIROLIMUS [Suspect]
     Active Substance: SIROLIMUS
     Indication: Lymphangioleiomyomatosis
     Dosage: 1 MG, 1X/DAY
     Route: 048
     Dates: start: 20141222
  2. SIROLIMUS [Suspect]
     Active Substance: SIROLIMUS
     Dosage: 1 MG, 1X/DAY
     Route: 048
     Dates: start: 20181002, end: 20181104
  3. SIROLIMUS [Suspect]
     Active Substance: SIROLIMUS
     Dosage: 1 MG, 1X/DAY
     Route: 048
     Dates: start: 20190123, end: 20190307
  4. SIROLIMUS [Suspect]
     Active Substance: SIROLIMUS
     Dosage: 1 MG, 1X/DAY
     Route: 048
     Dates: start: 20190307
  5. CERCINE [Concomitant]
     Active Substance: DIAZEPAM
     Dosage: 1 DF, 3X/DAY (1 DOSAGE FORMS, 8 HR)
     Route: 048
  6. ETHYL LOFLAZEPATE [Concomitant]
     Active Substance: ETHYL LOFLAZEPATE
     Dosage: 1 DF, 1X/DAY (1 DOSAGE FORMS,1 D)
     Route: 048
  7. ZYPREXA [Concomitant]
     Active Substance: OLANZAPINE
     Dosage: 1 DF, 1X/DAY (1 DOSAGE FORMS,1 D)
     Route: 048
  8. HALCION [Concomitant]
     Active Substance: TRIAZOLAM
     Dosage: 1 DF, 1X/DAY (1 DOSAGE FORMS,1 D)
     Route: 048
  9. PANCRELIPASE [Concomitant]
     Active Substance: PANCRELIPASE
     Dosage: 2 DF, 3X/DAY (2 DOSAGE FORMS, 8 HR)
     Route: 048
  10. LANSOPRAZOLE [Concomitant]
     Active Substance: LANSOPRAZOLE
     Indication: Prophylaxis
     Dosage: UNK
     Route: 050
  11. POTASSIUM ASPARTATE [Concomitant]
     Active Substance: POTASSIUM ASPARTATE
     Indication: Hypokalaemia
     Dosage: UNK
     Route: 050
  12. LEVETIRACETAM [Concomitant]
     Active Substance: LEVETIRACETAM
     Indication: Prophylaxis
     Dosage: UNK
     Route: 050
  13. VIMPAT [Concomitant]
     Active Substance: LACOSAMIDE
     Indication: Prophylaxis
     Dosage: UNK
     Route: 050
  14. DIAZEPAM [Concomitant]
     Active Substance: DIAZEPAM
     Indication: Insomnia
     Dosage: UNK
     Route: 050
  15. PITAVASTATIN CALCIUM [Concomitant]
     Active Substance: PITAVASTATIN CALCIUM
     Indication: Lipids abnormal
     Dosage: UNK
     Route: 050

REACTIONS (5)
  - Pneumonia [Fatal]
  - Seizure [Fatal]
  - Pulmonary function test decreased [Fatal]
  - Noninfective encephalitis [Recovered/Resolved with Sequelae]
  - Immobilisation syndrome [Unknown]

NARRATIVE: CASE EVENT DATE: 20181105
